FAERS Safety Report 8986514 (Version 4)
Quarter: 2013Q3

REPORT INFORMATION
  Report Type: Spontaneous
  Country: DK (occurrence: DK)
  Receive Date: 20121227
  Receipt Date: 20130814
  Transmission Date: 20140515
  Serious: Yes (Life-Threatening, Hospitalization, Disabling)
  Sender: FDA-Public Use
  Company Number: PHHY2012DK118497

PATIENT
  Age: 49 Year
  Sex: Male
  Weight: 92 kg

DRUGS (5)
  1. PREDNISOLONE [Suspect]
     Indication: SKIN DISORDER
     Dosage: UNK UKN, UNK
     Route: 048
     Dates: start: 200605, end: 200606
  2. ELIDEL [Suspect]
     Indication: DERMATITIS ALLERGIC
     Dosage: 1 % (ONE TO TWO TIMES PER WEEK)
     Route: 061
     Dates: start: 2005
  3. CYMBALTA [Concomitant]
     Dosage: 60 MG, QD
     Route: 048
  4. TOPIRAMATE [Concomitant]
     Dosage: 325 MG, DAILY
     Route: 048
  5. CORODIL [Concomitant]
     Dosage: 5 MG, QD
     Route: 048

REACTIONS (7)
  - Temporal lobe epilepsy [Unknown]
  - Muscle tightness [Unknown]
  - Convulsion [Unknown]
  - Speech disorder [Unknown]
  - Sudden onset of sleep [Unknown]
  - Cerebral ischaemia [Unknown]
  - Nervous system disorder [Unknown]
